FAERS Safety Report 4302410-X (Version None)
Quarter: 2004Q1

REPORT INFORMATION
  Report Type: 
  Country: None (occurrence: None)
  Receive Date: 20040220
  Receipt Date: 20040211
  Transmission Date: 20041129
  Serious: Yes (Other)
  Sender: FDA-Public Use
  Company Number: 2004-02-0739

PATIENT
  Sex: Female

DRUGS (2)
  1. PEG-INTRON [Suspect]
     Dosage: SUBCUTANEOUS
     Route: 058
     Dates: end: 20030501
  2. REBETOL [Suspect]
     Dosage: ORAL
     Route: 048
     Dates: end: 20030501

REACTIONS (1)
  - CATARACT [None]
